FAERS Safety Report 7732741-2 (Version None)
Quarter: 2011Q3

REPORT INFORMATION
  Report Type: 
  Country: None (occurrence: None)
  Receive Date: 20110823
  Receipt Date: 20110817
  Transmission Date: 20111222
  Serious: Yes (Other)
  Sender: FDA-Public Use
  Company Number: 2011028634

PATIENT
  Age: 79 Year
  Sex: Female
  Weight: 92.5338 kg

DRUGS (45)
  1. HIZENTRA [Suspect]
     Indication: IMMUNODEFICIENCY COMMON VARIABLE
     Dosage: SEE IMAGE
     Route: 058
     Dates: start: 20110502
  2. HIZENTRA [Suspect]
     Indication: IMMUNODEFICIENCY COMMON VARIABLE
     Dosage: SEE IMAGE
     Route: 058
     Dates: start: 20110502
  3. HIZENTRA [Suspect]
     Indication: IMMUNODEFICIENCY COMMON VARIABLE
     Dosage: SEE IMAGE
     Route: 058
     Dates: start: 20110710
  4. HIZENTRA [Suspect]
     Indication: IMMUNODEFICIENCY COMMON VARIABLE
     Dosage: SEE IMAGE
     Route: 058
     Dates: start: 20110710
  5. HIZENTRA [Suspect]
     Indication: IMMUNODEFICIENCY COMMON VARIABLE
     Dosage: SEE IMAGE
     Route: 058
     Dates: start: 20110803, end: 20110803
  6. HIZENTRA [Suspect]
     Indication: IMMUNODEFICIENCY COMMON VARIABLE
     Dosage: SEE IMAGE
     Route: 058
     Dates: start: 20110803, end: 20110803
  7. BONIVA [Concomitant]
  8. PLAQUENIL [Concomitant]
  9. HYDROCODONE-HOMATROPINE SYRUP (HYDROCODONE W/HOMATROPINE) [Concomitant]
  10. FOLIC ACID [Concomitant]
  11. PYRIDIUM (PHENAZOPYRIDINE HYDROCHLORIDE) [Concomitant]
  12. ASPIRIN [Concomitant]
  13. COLACE (DOCUSATE SODIUM) [Concomitant]
  14. HYZAAR 50 (HYDROCHLOROTHIAZIDE W/LOSARTAN) [Concomitant]
  15. PREDNISONE [Concomitant]
  16. ACETAMINOPHEN [Concomitant]
  17. CATAPRES-TTS-1 [Concomitant]
  18. PROCHLORPERAZINE MALEATE [Concomitant]
  19. METHOTREXATE [Concomitant]
  20. HIZENTRA [Suspect]
  21. HIZENTRA [Suspect]
  22. PRILOSEC DR (OMEPRAZOLE) [Concomitant]
  23. XOPENEX [Concomitant]
  24. OXYGEN (OXYGEN) [Concomitant]
  25. MIRALAX [Concomitant]
  26. LOVAZA [Concomitant]
  27. HIZENTRA [Suspect]
  28. HIZENTRA [Suspect]
  29. XANAX [Concomitant]
  30. LEXAPRO [Concomitant]
  31. MULTIVITAMIN (DAILY MULTIVITAMIN) [Concomitant]
  32. HIZENTRA [Suspect]
  33. MUCINEX [Concomitant]
  34. CALCIUM CARBONATE [Concomitant]
  35. KEFLEX [Concomitant]
  36. PRINIVIL [Concomitant]
  37. DIFLUCAN [Concomitant]
  38. CIPRO [Concomitant]
  39. SPIRIVA [Concomitant]
  40. COZAAR [Concomitant]
  41. ACIDOPHILUS (LACTOBACILLUS ACIDOPHILUS) [Concomitant]
  42. POLY-IRON (POLYSACCHARIDE-IRON COMPLEX) [Concomitant]
  43. ONDANSETRON HLC (ONDANSETRON) [Concomitant]
  44. VICODIN [Concomitant]
  45. ARANSEP (DARBEPOETIN ALFA) [Concomitant]

REACTIONS (9)
  - VOMITING [None]
  - ELECTROLYTE IMBALANCE [None]
  - HEADACHE [None]
  - FATIGUE [None]
  - INFUSION SITE ERYTHEMA [None]
  - NAUSEA [None]
  - OXYGEN SATURATION DECREASED [None]
  - BLOOD PRESSURE SYSTOLIC INCREASED [None]
  - HEART RATE INCREASED [None]
